FAERS Safety Report 19587507 (Version 1)
Quarter: 2021Q3

REPORT INFORMATION
  Report Type: Report from Study
  Country: CO (occurrence: CO)
  Receive Date: 20210721
  Receipt Date: 20210721
  Transmission Date: 20211014
  Serious: Yes (Other)
  Sender: FDA-Public Use
  Company Number: NVSC2021CO156942

PATIENT
  Sex: Female
  Weight: 75 kg

DRUGS (2)
  1. CALCIUM [Concomitant]
     Active Substance: CALCIUM
     Indication: BONE DISORDER
     Dosage: 1 DF, QD
     Route: 048
  2. LOSARTAN. [Suspect]
     Active Substance: LOSARTAN
     Indication: HYPERTENSION
     Dosage: 50 MG, Q8H (MORE THAN 15 YEARS AGO)
     Route: 048

REACTIONS (5)
  - Cataract [Unknown]
  - Glaucoma [Unknown]
  - Off label use [Unknown]
  - Psoriasis [Unknown]
  - Osteoarthritis [Unknown]
